FAERS Safety Report 6132257-3 (Version None)
Quarter: 2009Q1

REPORT INFORMATION
  Report Type: 
  Country: None (occurrence: None)
  Receive Date: 20090325
  Receipt Date: 20090310
  Transmission Date: 20090719
  Serious: Yes (Death)
  Sender: FDA-Public Use
  Company Number: US-PFIZER INC-2008003575

PATIENT
  Age: 38 Year
  Sex: Male

DRUGS (4)
  1. PREGABALIN [Suspect]
     Route: 048
  2. DIAZEPAM [Suspect]
     Route: 048
  3. METHADONE [Suspect]
     Route: 048
  4. CARISOPRODOL [Suspect]
     Route: 048

REACTIONS (3)
  - CARDIAC ARREST [None]
  - COMPLETED SUICIDE [None]
  - RESPIRATORY ARREST [None]
